FAERS Safety Report 7158087-1 (Version None)
Quarter: 2010Q4

REPORT INFORMATION
  Report Type: 
  Country: None (occurrence: None)
  Receive Date: 20101214
  Receipt Date: 20100422
  Transmission Date: 20110411
  Serious: No
  Sender: FDA-Public Use
  Company Number: US-ASTRAZENECA-2010SE17969

PATIENT
  Sex: Female
  Weight: 63.5 kg

DRUGS (6)
  1. CRESTOR [Suspect]
     Route: 048
  2. LISINOPRIL [Concomitant]
     Indication: BLOOD PRESSURE
  3. ATENOLOL [Concomitant]
     Indication: BLOOD PRESSURE
  4. AMLODIPINE [Concomitant]
     Indication: BLOOD PRESSURE
  5. PLAVIX [Concomitant]
     Indication: CAROTID ARTERY THROMBOSIS
  6. HYDROCHLOROTHIAZIDE [Concomitant]
     Indication: BLOOD PRESSURE

REACTIONS (1)
  - INSOMNIA [None]
